FAERS Safety Report 7496483-3 (Version None)
Quarter: 2011Q2

REPORT INFORMATION
  Report Type: 
  Country: None (occurrence: None)
  Receive Date: 20110523
  Receipt Date: 20110518
  Transmission Date: 20111010
  Serious: Yes (Other)
  Sender: FDA-Public Use
  Company Number: A0927914A

PATIENT
  Age: 39 Year
  Sex: Female

DRUGS (1)
  1. ALLI [Suspect]
     Indication: WEIGHT LOSS DIET
     Route: 048
     Dates: start: 20110504, end: 20110501

REACTIONS (6)
  - ANOSMIA [None]
  - DRUG INEFFECTIVE [None]
  - LAZINESS [None]
  - ALOPECIA [None]
  - NAUSEA [None]
  - MALAISE [None]
